FAERS Safety Report 8225689-0 (Version None)
Quarter: 2012Q1

REPORT INFORMATION
  Report Type: 
  Country: None (occurrence: None)
  Receive Date: 20120321
  Receipt Date: 20120315
  Transmission Date: 20120608
  Serious: Yes (Death, Other)
  Sender: FDA-Public Use
  Company Number: GB-ELI_LILLY_AND_COMPANY-GB201203004321

PATIENT
  Age: 64 Year
  Sex: Female
  Weight: 98 kg

DRUGS (9)
  1. EXENATIDE [Suspect]
     Indication: DIABETES MELLITUS
     Dosage: 5 UG, UNKNOWN
     Route: 058
     Dates: start: 20110301, end: 20110331
  2. ALLOPURINOL [Concomitant]
     Indication: GOUT
     Dosage: 300 MG, UNKNOWN
     Route: 048
     Dates: start: 20001101
  3. CITALOPRAM HYDROBROMIDE [Concomitant]
     Indication: DEPRESSION
     Dosage: 20 MG, UNKNOWN
  4. DICLOFENAC SODIUM [Concomitant]
     Indication: OSTEOARTHRITIS
     Dosage: 100 MG, UNKNOWN
     Route: 048
     Dates: start: 20011001
  5. EXENATIDE [Suspect]
     Dosage: 10 UG, UNKNOWN
     Route: 058
     Dates: start: 20110331
  6. EZETIMIBE [Concomitant]
     Indication: HYPERCHOLESTEROLAEMIA
     Dosage: 10 MG, UNKNOWN
     Route: 048
     Dates: start: 20090801
  7. LEVOTHYROXINE SODIUM [Concomitant]
     Indication: HYPERTHYROIDISM
     Dosage: 200 UG, UNKNOWN
     Dates: start: 20001101
  8. ACETAMINOPHEN [Concomitant]
     Indication: PYREXIA
     Dosage: 1 G, UNKNOWN
     Route: 048
  9. METOCLOPRAMIDE [Concomitant]
     Indication: NAUSEA
     Dosage: 10 MG, UNKNOWN
     Dates: start: 20110301

REACTIONS (3)
  - PERICARDIAL HAEMORRHAGE [None]
  - CARDIAC PERFORATION [None]
  - MYOCARDIAL INFARCTION [None]
